FAERS Safety Report 15291546 (Version 4)
Quarter: 2018Q4

REPORT INFORMATION
  Report Type: Report from Study
  Country: US (occurrence: US)
  Receive Date: 20180817
  Receipt Date: 20181004
  Transmission Date: 20190204
  Serious: Yes (Hospitalization, Other)
  Sender: FDA-Public Use
  Company Number: US-SHIRE-US201831237

PATIENT
  Age: 43 Year
  Sex: Male

DRUGS (1)
  1. ELAPRASE [Suspect]
     Active Substance: IDURSULFASE
     Indication: MUCOPOLYSACCHARIDOSIS II
     Dosage: UNKNOWN VIAL, 1X/WEEK
     Route: 042

REACTIONS (5)
  - Loss of consciousness [Not Recovered/Not Resolved]
  - Concussion [Unknown]
  - Fall [Not Recovered/Not Resolved]
  - Dysphagia [Unknown]
  - Head injury [Not Recovered/Not Resolved]

NARRATIVE: CASE EVENT DATE: 20180805
